FAERS Safety Report 8573217 (Version 2)
Quarter: 2013Q3

REPORT INFORMATION
  Report Type: Spontaneous
  Country: US (occurrence: US)
  Receive Date: 20120522
  Receipt Date: 20130705
  Transmission Date: 20140515
  Serious: Yes (Hospitalization)
  Sender: FDA-Public Use
  Company Number: US-BAYER-2012-049499

PATIENT
  Age: 45 Year
  Sex: Female
  Weight: 71 kg

DRUGS (11)
  1. YAZ [Suspect]
     Dosage: UNK
     Dates: start: 200805, end: 201109
  2. GIANVI [Suspect]
     Dosage: UNK
     Dates: start: 200805, end: 201109
  3. LAMICTAL [Concomitant]
     Dosage: 200 MG, QD
     Route: 048
  4. KLONOPIN [Concomitant]
     Dosage: 1 MG, QD
     Route: 048
  5. SERTRALINE [Concomitant]
     Dosage: 100 MG, BID
     Route: 048
  6. VICODIN [Concomitant]
     Dosage: 10 MG, Q4HR
     Route: 048
  7. FLEXERIL [Concomitant]
     Route: 048
  8. RELPAX [Concomitant]
  9. ABILIFY [Concomitant]
     Dosage: 5 MG, UNK
  10. ALESSE [Concomitant]
  11. CLONAZEPAM [Concomitant]

REACTIONS (8)
  - Deep vein thrombosis [None]
  - Thrombophlebitis superficial [None]
  - Injury [None]
  - Pain [None]
  - General physical health deterioration [None]
  - Emotional distress [None]
  - Pain [None]
  - Anxiety [None]
